FAERS Safety Report 9381736 (Version 5)
Quarter: 2013Q4

REPORT INFORMATION
  Report Type: Spontaneous
  Country: JP (occurrence: JP)
  Receive Date: 20130703
  Receipt Date: 20131118
  Transmission Date: 20140711
  Serious: Yes (Death, Hospitalization, Other)
  Sender: FDA-Public Use
  Company Number: JP-PFIZER INC-2013191978

PATIENT
  Age: 12 Year
  Sex: Male
  Weight: 28 kg

DRUGS (9)
  1. INLYTA [Suspect]
     Indication: RENAL CANCER
     Dosage: 6 MG/DAY
     Route: 048
     Dates: start: 20130307
  2. INLYTA [Suspect]
     Dosage: 8 MG/DAY
     Route: 048
     Dates: start: 20130322
  3. INLYTA [Suspect]
     Dosage: 10 MG/DAY
     Route: 048
     Dates: start: 20130405
  4. INLYTA [Suspect]
     Dosage: 6 MG/DAY
     Route: 048
     Dates: start: 20130426
  5. INLYTA [Suspect]
     Dosage: 4 MG/DAY
     Route: 048
     Dates: start: 20130606
  6. INLYTA [Suspect]
     Dosage: 6 MG/DAY
     Route: 048
     Dates: start: 20130628
  7. BAKTAR [Concomitant]
     Indication: INFECTION PROPHYLAXIS
  8. FAMOTIDINE [Concomitant]
     Indication: GASTRITIS
     Dosage: 20 MG, 2X/DAY
     Route: 048
     Dates: start: 20130221
  9. DEPAS [Concomitant]

REACTIONS (6)
  - Interstitial lung disease [Not Recovered/Not Resolved]
  - Cardiac failure [Recovered/Resolved]
  - Hypertension [Recovering/Resolving]
  - Disease progression [Fatal]
  - Renal cancer [Fatal]
  - Off label use [Unknown]
